FAERS Safety Report 7892605-0 (Version None)
Quarter: 2011Q4

REPORT INFORMATION
  Report Type: 
  Country: None (occurrence: None)
  Receive Date: 20111102
  Receipt Date: 20111019
  Transmission Date: 20120403
  Serious: Yes (Death)
  Sender: FDA-Public Use
  Company Number: MC201100516

PATIENT
  Age: 80 Year
  Sex: Male

DRUGS (3)
  1. ASPIRIN [Concomitant]
  2. CLOPIDOGREL [Concomitant]
  3. ANGIOMAX [Suspect]

REACTIONS (1)
  - DEATH [None]
